FAERS Safety Report 22225880 (Version 1)
Quarter: 2023Q2

REPORT INFORMATION
  Report Type: Spontaneous
  Country: CN (occurrence: None)
  Receive Date: 20230419
  Receipt Date: 20230419
  Transmission Date: 20230721
  Serious: Yes (Other)
  Sender: FDA-Public Use
  Company Number: CN-ROCHE-3329740

PATIENT
  Age: 70 Year
  Sex: Male

DRUGS (6)
  1. OBINUTUZUMAB [Suspect]
     Active Substance: OBINUTUZUMAB
     Indication: Mantle cell lymphoma
     Dosage: D1
     Route: 042
     Dates: start: 20220712
  2. BENDAMUSTINE [Concomitant]
     Active Substance: BENDAMUSTINE
     Indication: Mantle cell lymphoma
     Dosage: D2-3
     Dates: start: 20220712
  3. RITUXIMAB [Concomitant]
     Active Substance: RITUXIMAB
     Indication: Mantle cell lymphoma
     Dosage: 0.6 UNIT NOT REPORTED
     Dates: start: 20220822
  4. ORELABRUTINIB [Concomitant]
     Active Substance: ORELABRUTINIB
     Indication: Mantle cell lymphoma
     Dates: start: 20220822
  5. FLUDARABINE [Concomitant]
     Active Substance: FLUDARABINE PHOSPHATE
     Indication: Mantle cell lymphoma
     Dates: start: 20221203
  6. CYCLOPHOSPHAMIDE [Concomitant]
     Active Substance: CYCLOPHOSPHAMIDE
     Indication: Mantle cell lymphoma
     Dates: start: 20221203

REACTIONS (6)
  - Myelosuppression [Recovering/Resolving]
  - Platelet count decreased [Unknown]
  - Staphylococcal sepsis [Unknown]
  - Agranulocytosis [Unknown]
  - Off label use [Unknown]
  - Pyrexia [Unknown]
